FAERS Safety Report 7016735-0 (Version None)
Quarter: 2010Q3

REPORT INFORMATION
  Report Type: 
  Country: None (occurrence: None)
  Receive Date: 20100927
  Receipt Date: 20100915
  Transmission Date: 20110219
  Serious: Yes (Other)
  Sender: FDA-Public Use
  Company Number: US-WYE-H17548410

PATIENT
  Sex: Female

DRUGS (1)
  1. PRISTIQ [Suspect]
     Dosage: UNKNOWN
     Route: 064

REACTIONS (5)
  - ABORTION SPONTANEOUS [None]
  - BLOOD PROLACTIN INCREASED [None]
  - DRUG EXPOSURE DURING PREGNANCY [None]
  - INFERTILITY FEMALE [None]
  - PAIN [None]
